FAERS Safety Report 17032939 (Version 1)
Quarter: 2019Q4

REPORT INFORMATION
  Report Type: Report from Study
  Country: US (occurrence: US)
  Receive Date: 20191114
  Receipt Date: 20191114
  Transmission Date: 20200122
  Serious: Yes (Other)
  Sender: FDA-Public Use
  Company Number: US-BAUSCH-BL-2019-061262

PATIENT
  Age: 35 Year
  Sex: Male

DRUGS (3)
  1. LACTULOSE. [Suspect]
     Active Substance: LACTULOSE
     Dosage: INCREASED
     Route: 065
     Dates: start: 2018
  2. LACTULOSE. [Suspect]
     Active Substance: LACTULOSE
     Indication: PRODUCT USED FOR UNKNOWN INDICATION
     Route: 065
     Dates: end: 2018
  3. XIFAXAN [Suspect]
     Active Substance: RIFAXIMIN
     Indication: PRODUCT USED FOR UNKNOWN INDICATION
     Route: 065

REACTIONS (15)
  - Cirrhosis alcoholic [Unknown]
  - Abdominal discomfort [Unknown]
  - Insomnia [Unknown]
  - Epistaxis [Not Recovered/Not Resolved]
  - Fatigue [Unknown]
  - Hepatic hydrothorax [Unknown]
  - Thrombocytopenia [Unknown]
  - Dysphagia [Unknown]
  - Infrequent bowel movements [Unknown]
  - Hyperhidrosis [Unknown]
  - Weight decreased [Unknown]
  - Diarrhoea [Unknown]
  - Malaise [Unknown]
  - Dyspnoea [Unknown]
  - Minimal hepatic encephalopathy [Unknown]

NARRATIVE: CASE EVENT DATE: 2018
